FAERS Safety Report 7354957-X (Version None)
Quarter: 2011Q1

REPORT INFORMATION
  Report Type: 
  Country: None (occurrence: None)
  Receive Date: 20110307
  Receipt Date: 20110218
  Transmission Date: 20110831
  Serious: Yes (Life-Threatening)
  Sender: FDA-Public Use
  Company Number: 009978

PATIENT
  Sex: Male
  Weight: 146 kg

DRUGS (5)
  1. ENTOCORT EC [Concomitant]
  2. PREDNISONE [Concomitant]
  3. CIMZIA [Suspect]
     Indication: CROHN'S DISEASE
     Dosage: SUBCUTANEOUS
     Route: 058
     Dates: start: 20100407, end: 20100407
  4. XIFAXAN [Concomitant]
  5. LOMOTIL [Concomitant]

REACTIONS (1)
  - ANAPHYLACTIC REACTION [None]
